FAERS Safety Report 22162264 (Version 1)
Quarter: 2023Q1

REPORT INFORMATION
  Report Type: Spontaneous
  Country: FR (occurrence: FR)
  Receive Date: 20230331
  Receipt Date: 20230331
  Transmission Date: 20230417
  Serious: Yes (Hospitalization)
  Sender: FDA-Public Use
  Company Number: None

PATIENT
  Age: 51 Year
  Sex: Male
  Weight: 79 kg

DRUGS (5)
  1. IBUPROFEN [Suspect]
     Active Substance: IBUPROFEN
     Indication: Back pain
     Dosage: 400 MILLIGRAM, Q8H
     Route: 048
     Dates: start: 20230302, end: 20230304
  2. KETOPROFEN [Suspect]
     Active Substance: KETOPROFEN
     Indication: Back pain
     Dosage: 100 MILLIGRAM, TOTAL
     Route: 042
     Dates: start: 20230305, end: 20230305
  3. KETOPROFEN [Suspect]
     Active Substance: KETOPROFEN
     Dosage: 100 MILLIGRAM, TOTAL
     Route: 042
     Dates: start: 20230304, end: 20230304
  4. ACETAMINOPHEN [Concomitant]
     Active Substance: ACETAMINOPHEN
     Indication: Back pain
     Dosage: UNK
     Route: 048
     Dates: start: 20230302
  5. ACETAMINOPHEN [Concomitant]
     Active Substance: ACETAMINOPHEN
     Indication: Back pain
     Dosage: UNK, TOTAL
     Route: 042
     Dates: start: 20230304, end: 20230304

REACTIONS (1)
  - Severe invasive streptococcal infection [Not Recovered/Not Resolved]

NARRATIVE: CASE EVENT DATE: 20230306
